FAERS Safety Report 10846806 (Version 4)
Quarter: 2015Q2

REPORT INFORMATION
  Report Type: Spontaneous
  Country: JP (occurrence: JP)
  Receive Date: 20150220
  Receipt Date: 20150409
  Transmission Date: 20150821
  Serious: Yes (Other)
  Sender: FDA-Public Use
  Company Number: JP-BAYER-2015-026014

PATIENT
  Age: 76 Year
  Sex: Female

DRUGS (11)
  1. AZULENE [Concomitant]
     Active Substance: AZULENE
     Dosage: UNK
     Route: 048
  2. GASMOTIN [Concomitant]
     Active Substance: MOSAPRIDE CITRATE
     Dosage: 15 MG, DAILY DOSE
     Route: 048
  3. CARDENALIN [Concomitant]
     Active Substance: DOXAZOSIN MESYLATE
     Dosage: 2 MG, DAILY DOSE
     Route: 048
  4. SENNOSIDE [Concomitant]
     Active Substance: SENNOSIDES
     Dosage: 48 MG, DAILY DOSE
     Route: 048
  5. PARIET [Concomitant]
     Active Substance: RABEPRAZOLE SODIUM
     Dosage: 20 MG, DAILY DOSE
     Route: 048
  6. NESINA [Concomitant]
     Active Substance: ALOGLIPTIN BENZOATE
     Dosage: 12.5 MG, DAILY DOSE
     Route: 048
  7. LIVALO [Concomitant]
     Active Substance: PITAVASTATIN CALCIUM
     Dosage: 2 MG, DAILY DOSE
     Route: 048
  8. BAYASPIRIN [Suspect]
     Active Substance: ASPIRIN
     Indication: CEREBRAL INFARCTION
     Dosage: 100 MG, OM
     Route: 048
  9. RIVOTRIL [Concomitant]
     Active Substance: CLONAZEPAM
     Dosage: UNK
     Route: 048
  10. DEPAS [Concomitant]
     Active Substance: ETIZOLAM
     Dosage: 1 MG, DAILY DOSE
     Route: 048
  11. ADALAT-L [Concomitant]
     Active Substance: NIFEDIPINE
     Dosage: 20 MG, DAILY DOSE
     Route: 048

REACTIONS (3)
  - Enterocolitis [Recovering/Resolving]
  - Gastrointestinal mucosal disorder [Recovering/Resolving]
  - Ileus [Recovering/Resolving]

NARRATIVE: CASE EVENT DATE: 20140511
